FAERS Safety Report 23229853 (Version 2)
Quarter: 2024Q2

REPORT INFORMATION
  Report Type: Other
  Country: DE (occurrence: None)
  Receive Date: 20231127
  Receipt Date: 20240531
  Transmission Date: 20240716
  Serious: Yes (Other)
  Sender: FDA-Public Use
  Company Number: DE-ROCHE-2732936

PATIENT
  Age: 48 Year
  Sex: Female

DRUGS (15)
  1. OCREVUS [Suspect]
     Active Substance: OCRELIZUMAB
     Indication: Relapsing-remitting multiple sclerosis
     Route: 042
     Dates: start: 20201207
  2. OCREVUS [Suspect]
     Active Substance: OCRELIZUMAB
     Route: 042
     Dates: start: 20201221
  3. BACLOFEN [Concomitant]
     Active Substance: BACLOFEN
     Dosage: THREE TIMES
  4. CYCLOSPORINE [Concomitant]
     Active Substance: CYCLOSPORINE
  5. VITAMIN A [Concomitant]
     Active Substance: VITAMIN A
  6. VITAMIN D3 K2 [Concomitant]
  7. SELENIUM [Concomitant]
     Active Substance: SELENIUM
  8. MAGNESIUM [Concomitant]
     Active Substance: MAGNESIUM
  9. VITAMIN B-KOMPLEX [Concomitant]
  10. GLUTATHIONE [Concomitant]
     Active Substance: GLUTATHIONE
  11. VITAMIN C [Concomitant]
     Active Substance: ASCORBIC ACID
  12. COENZYM Q10 [Concomitant]
  13. ZINC [Concomitant]
     Active Substance: PYRITHIONE ZINC\ZINC\ZINC CHLORIDE
  14. OMEGA 3 [Concomitant]
     Active Substance: CAPSAICIN
  15. IBUPROFEN [Concomitant]
     Active Substance: IBUPROFEN

REACTIONS (31)
  - Macular oedema [Recovered/Resolved]
  - Psoriatic arthropathy [Not Recovered/Not Resolved]
  - Fatigue [Recovered/Resolved]
  - Flushing [Recovering/Resolving]
  - Dry mouth [Recovering/Resolving]
  - Psoriasis [Not Recovered/Not Resolved]
  - Pruritus [Recovered/Resolved]
  - Sinusitis [Not Recovered/Not Resolved]
  - Back pain [Recovered/Resolved]
  - Osteoporosis [Not Recovered/Not Resolved]
  - Iritis [Recovered/Resolved]
  - Pyrexia [Recovered/Resolved]
  - Heavy menstrual bleeding [Not Recovered/Not Resolved]
  - Menstruation irregular [Not Recovered/Not Resolved]
  - Nail hypertrophy [Not Recovered/Not Resolved]
  - Nail discolouration [Not Recovered/Not Resolved]
  - Chills [Unknown]
  - Conjunctivitis [Recovered/Resolved]
  - Fibromyalgia [Not Recovered/Not Resolved]
  - Emotional distress [Not Recovered/Not Resolved]
  - Gait disturbance [Recovered/Resolved]
  - Wound complication [Recovered/Resolved]
  - Urinary incontinence [Recovered/Resolved]
  - Dysuria [Recovered/Resolved]
  - Hypertension [Unknown]
  - Haematoma [Recovered/Resolved]
  - Pulpitis dental [Recovered/Resolved]
  - Gingival swelling [Recovered/Resolved]
  - Bladder disorder [Recovering/Resolving]
  - COVID-19 [Recovered/Resolved]
  - Seasonal allergy [Not Recovered/Not Resolved]

NARRATIVE: CASE EVENT DATE: 20201207
